FAERS Safety Report 6562390-3 (Version None)
Quarter: 2010Q1

REPORT INFORMATION
  Report Type: 
  Country: None (occurrence: None)
  Receive Date: 20100130
  Receipt Date: 20091109
  Transmission Date: 20100710
  Serious: No
  Sender: FDA-Public Use
  Company Number: US-ABBOTT-09P-163-0608066-00

PATIENT
  Sex: Female
  Weight: 61.29 kg

DRUGS (3)
  1. HUMIRA [Suspect]
     Indication: COLITIS ULCERATIVE
     Route: 058
  2. HUMIRA [Suspect]
     Route: 058
     Dates: start: 20090601
  3. HUMIRA [Suspect]
     Dates: start: 20090501, end: 20090601

REACTIONS (2)
  - COLITIS ULCERATIVE [None]
  - HAEMATOCHEZIA [None]
